FAERS Safety Report 5443342-3 (Version None)
Quarter: 2007Q3

REPORT INFORMATION
  Report Type: 
  Country: None (occurrence: None)
  Receive Date: 20070905
  Receipt Date: 20070830
  Transmission Date: 20080115
  Serious: Yes (Death, Hospitalization, Congenital Anomaly)
  Sender: FDA-Public Use
  Company Number: A0388686B

PATIENT
  Sex: Male

DRUGS (1)
  1. PAXIL [Suspect]
     Dosage: 20MG PER DAY
     Dates: end: 20020608

REACTIONS (14)
  - CARDIAC FAILURE [None]
  - CARDIOGENIC SHOCK [None]
  - CORONARY ARTERY DILATATION [None]
  - DILATATION VENTRICULAR [None]
  - DISSEMINATED INTRAVASCULAR COAGULATION [None]
  - DRUG EXPOSURE DURING PREGNANCY [None]
  - HEART DISEASE CONGENITAL [None]
  - HYPOTENSION [None]
  - MITRAL VALVE STENOSIS [None]
  - PREMATURE LABOUR [None]
  - RESPIRATORY DISTRESS [None]
  - SEPSIS [None]
  - TRICUSPID VALVE DISEASE [None]
  - TRICUSPID VALVE INCOMPETENCE [None]
